FAERS Safety Report 6276480-6 (Version None)
Quarter: 2009Q3

REPORT INFORMATION
  Report Type: 
  Country: None (occurrence: None)
  Receive Date: 20090722
  Receipt Date: 20090710
  Transmission Date: 20100115
  Serious: Yes (Hospitalization)
  Sender: FDA-Public Use
  Company Number: US-ELI_LILLY_AND_COMPANY-US200907002300

PATIENT
  Sex: Female

DRUGS (1)
  1. FORTEO [Suspect]
     Indication: OSTEOPOROSIS
     Dosage: UNK, DAILY (1/D)
     Dates: start: 20090101

REACTIONS (6)
  - ABSCESS [None]
  - ASTHENIA [None]
  - DIVERTICULITIS [None]
  - HERNIA [None]
  - INTENTIONAL DRUG MISUSE [None]
  - MEDICATION ERROR [None]
